FAERS Safety Report 21879887 (Version 1)
Quarter: 2023Q1

REPORT INFORMATION
  Report Type: Spontaneous
  Country: IT (occurrence: IT)
  Receive Date: 20230118
  Receipt Date: 20230118
  Transmission Date: 20230418
  Serious: Yes (Death, Hospitalization, Other)
  Sender: FDA-Public Use
  Company Number: IT-JNJFOC-20230117424

PATIENT
  Age: 83 Year
  Sex: Female

DRUGS (1)
  1. IMBRUVICA [Suspect]
     Active Substance: IBRUTINIB
     Indication: Waldenstrom^s macroglobulinaemia
     Route: 048
     Dates: start: 202201

REACTIONS (5)
  - Cerebral aspergillosis [Fatal]
  - Off label use [Unknown]
  - Atrial fibrillation [Unknown]
  - Bronchopulmonary aspergillosis [Fatal]
  - Asthenia [Unknown]
